FAERS Safety Report 23644399 (Version 1)
Quarter: 2024Q1

REPORT INFORMATION
  Report Type: Spontaneous
  Country: TR (occurrence: TR)
  Receive Date: 20240318
  Receipt Date: 20240318
  Transmission Date: 20240410
  Serious: Yes (Other)
  Sender: FDA-Public Use
  Company Number: TR-BAXTER-2024BAX014808

PATIENT

DRUGS (3)
  1. CYCLOPHOSPHAMIDE [Suspect]
     Active Substance: CYCLOPHOSPHAMIDE
     Indication: Transplant evaluation
     Dosage: UNK, HIGH DOSES (AROUND 6 GRAMS)
     Route: 065
  2. CYCLOPHOSPHAMIDE [Suspect]
     Active Substance: CYCLOPHOSPHAMIDE
     Indication: Bone marrow conditioning regimen
  3. MESNA [Suspect]
     Active Substance: MESNA
     Indication: Prophylaxis
     Dosage: UNK
     Route: 065

REACTIONS (3)
  - Cystitis haemorrhagic [Recovered/Resolved]
  - Drug ineffective [Unknown]
  - Treatment noncompliance [Unknown]
